FAERS Safety Report 9775590 (Version 2)
Quarter: 2014Q1

REPORT INFORMATION
  Report Type: Spontaneous
  Country: US (occurrence: US)
  Receive Date: 20131220
  Receipt Date: 20140305
  Transmission Date: 20141002
  Serious: No
  Sender: FDA-Public Use
  Company Number: US-ROXANE LABORATORIES, INC.-2013-RO-01994RO

PATIENT
  Age: 60 Year
  Sex: Male

DRUGS (1)
  1. ROXICET [Suspect]
     Indication: PAIN
     Route: 048
     Dates: start: 20131212

REACTIONS (2)
  - Drug ineffective [Not Recovered/Not Resolved]
  - Product quality issue [Not Recovered/Not Resolved]
